FAERS Safety Report 21985513 (Version 1)
Quarter: 2023Q1

REPORT INFORMATION
  Report Type: Spontaneous
  Country: US (occurrence: US)
  Receive Date: 20230213
  Receipt Date: 20230213
  Transmission Date: 20230417
  Serious: Yes (Other)
  Sender: FDA-Public Use
  Company Number: US-PFIZER INC-PV202300025911

PATIENT
  Age: 69 Year
  Sex: Female

DRUGS (1)
  1. RIFABUTIN [Suspect]
     Active Substance: RIFABUTIN
     Dosage: UNK

REACTIONS (3)
  - Myelosuppression [Unknown]
  - Leukopenia [Unknown]
  - Anaemia [Unknown]
